FAERS Safety Report 5738494-1 (Version None)
Quarter: 2008Q2

REPORT INFORMATION
  Report Type: 
  Country: None (occurrence: None)
  Receive Date: 20080513
  Receipt Date: 20080507
  Transmission Date: 20081010
  Serious: Yes (Death, Hospitalization)
  Sender: FDA-Public Use
  Company Number: CLOF-1000142

PATIENT
  Age: 51 Year
  Sex: Male
  Weight: 106 kg

DRUGS (31)
  1. CLOFARABINE (CLOFARABINE) SOLUTION FOR INFUSION [Suspect]
     Indication: MYELODYSPLASTIC SYNDROME
     Dosage: 40 MG/M2, QDX5, INTRAVENOUS
     Route: 042
     Dates: start: 20080313, end: 20080317
  2. CYTARABINE [Suspect]
     Indication: MYELODYSPLASTIC SYNDROME
     Dosage: 1 G/M2, QDX5, INTRAVENOUS
     Route: 042
     Dates: start: 20080313, end: 20080317
  3. THYMOGLOBULIN [Suspect]
     Indication: MYELODYSPLASTIC SYNDROME
     Dosage: 1 MG/M2, ONCE, INTRAVENOUS; 2.5 MG/M2, QD, INTRAVENOUS
     Route: 042
     Dates: start: 20080315, end: 20080315
  4. THYMOGLOBULIN [Suspect]
     Indication: MYELODYSPLASTIC SYNDROME
     Dosage: 1 MG/M2, ONCE, INTRAVENOUS; 2.5 MG/M2, QD, INTRAVENOUS
     Route: 042
     Dates: start: 20080316, end: 20080317
  5. COMPAZINE (PROCHLORPERAZINE MALEATE) [Concomitant]
  6. PAXIL [Concomitant]
  7. FAMOTIDINE [Concomitant]
  8. LISINOPRIL (LISINOPRIL DIHYDRATE) [Concomitant]
  9. MICONAZOLE [Concomitant]
  10. AMBIEN [Concomitant]
  11. COMBIVENT [Concomitant]
  12. FLUOXETINE [Concomitant]
  13. METOPROLOL TARTRATE [Concomitant]
  14. PREDNISOLONE ACETATE [Concomitant]
  15. VALTREX [Concomitant]
  16. URSODIOL (URSODEOXYCHOLIC ACID) [Concomitant]
  17. TACROLIMUS [Concomitant]
  18. AZITHROMYCIN [Concomitant]
  19. MEROPENEM (MEROPENEM) [Concomitant]
  20. GANCICLOVIR [Concomitant]
  21. VALTREX [Concomitant]
  22. LASIX [Concomitant]
  23. DAPSONE [Concomitant]
  24. FLUCONAZOLE [Concomitant]
  25. CIPROFLOXACIN (CIPROFLOXACIN LACTATE) [Concomitant]
  26. OXYCODONE (OXYCODONE, PARACETAMOL) [Concomitant]
  27. CARISOPRODOL [Concomitant]
  28. PEPCID (FAMOTIDINE, MAGNESIUM HYDROXIDE) [Concomitant]
  29. SOLU-MEDROL [Concomitant]
  30. AMICAR [Concomitant]
  31. TESSALON [Concomitant]

REACTIONS (6)
  - BRADYCARDIA [None]
  - EFFUSION [None]
  - HYPOTENSION [None]
  - MALIGNANT NEOPLASM PROGRESSION [None]
  - PNEUMONIA [None]
  - PULMONARY OEDEMA [None]
